FAERS Safety Report 13560071 (Version 2)
Quarter: 2017Q2

REPORT INFORMATION
  Report Type: Spontaneous
  Country: IT (occurrence: IT)
  Receive Date: 20170518
  Receipt Date: 20170518
  Transmission Date: 20170830
  Serious: Yes (Hospitalization)
  Sender: FDA-Public Use
  Company Number: IT-BRISTOL-MYERS SQUIBB COMPANY-BMS-2017-042176

PATIENT
  Age: 62 Year
  Sex: Male

DRUGS (1)
  1. NIVOLUMAB [Suspect]
     Active Substance: NIVOLUMAB
     Indication: SQUAMOUS CELL CARCINOMA OF LUNG
     Dosage: UNK
     Route: 065

REACTIONS (7)
  - Urinary tract pain [Unknown]
  - Pyrexia [Unknown]
  - Diarrhoea [Unknown]
  - Mucosal erosion [Unknown]
  - Mucosal discolouration [Unknown]
  - Haematuria [Unknown]
  - Cystitis [Unknown]
